FAERS Safety Report 4961832-4 (Version None)
Quarter: 2006Q2

REPORT INFORMATION
  Report Type: 
  Country: None (occurrence: None)
  Receive Date: 20060404
  Receipt Date: 20060330
  Transmission Date: 20061013
  Serious: Yes (Hospitalization)
  Sender: FDA-Public Use
  Company Number: FR-GLAXOSMITHKLINE-B0418469A

PATIENT
  Age: 49 Year
  Sex: Female
  Weight: 130 kg

DRUGS (9)
  1. VENTOLIN [Suspect]
     Indication: ASTHMA
     Route: 055
  2. SERETIDE [Suspect]
     Indication: ASTHMA
     Route: 055
  3. LASILIX [Suspect]
     Dosage: 40MG PER DAY
  4. MONOTILDIEM [Suspect]
     Dosage: 300MG PER DAY
     Route: 048
  5. EZETROL [Suspect]
     Dosage: 10MG PER DAY
     Route: 048
     Dates: start: 20050901, end: 20060204
  6. ZOLPIDEM HEMITARTRATE [Suspect]
     Indication: SLEEP DISORDER
     Route: 048
  7. DISCOTRINE [Suspect]
     Dosage: 10MG PER DAY
  8. KARDEGIC [Concomitant]
     Dosage: 75MG PER DAY
  9. DAFALGAN [Concomitant]

REACTIONS (3)
  - BLOOD CREATINE PHOSPHOKINASE INCREASED [None]
  - MYALGIA [None]
  - RENAL FAILURE [None]
